FAERS Safety Report 8420169-1 (Version None)
Quarter: 2012Q2

REPORT INFORMATION
  Report Type: 
  Country: None (occurrence: None)
  Receive Date: 20120607
  Receipt Date: 20120529
  Transmission Date: 20120825
  Serious: Yes (Hospitalization)
  Sender: FDA-Public Use
  Company Number: US-JNJFOC-20120520597

PATIENT
  Sex: Female
  Weight: 50 kg

DRUGS (5)
  1. METRONIDAZOLE [Concomitant]
  2. INFLIXIMAB, RECOMBINANT [Suspect]
     Route: 042
     Dates: start: 20091012
  3. MERCAPTOPURINE [Concomitant]
  4. INFLIXIMAB, RECOMBINANT [Suspect]
     Indication: CROHN'S DISEASE
     Route: 042
     Dates: start: 20040119
  5. CEFTRIAXONE [Concomitant]

REACTIONS (3)
  - ILEAL FISTULA [None]
  - CROHN'S DISEASE [None]
  - INTESTINAL PERFORATION [None]
